FAERS Safety Report 18005578 (Version 3)
Quarter: 2021Q2

REPORT INFORMATION
  Report Type: Spontaneous
  Country: US (occurrence: US)
  Receive Date: 20200710
  Receipt Date: 20210622
  Transmission Date: 20210717
  Serious: Yes (Other)
  Sender: FDA-Public Use
  Company Number: US-GLAXOSMITHKLINE-US2020126425

PATIENT
  Sex: Male

DRUGS (60)
  1. RANITIDINE. [Suspect]
     Active Substance: RANITIDINE
     Dosage: UNK
  2. RANITIDINE HCI [Suspect]
     Active Substance: RANITIDINE HYDROCHLORIDE
  3. ZANTAC [Suspect]
     Active Substance: RANITIDINE HYDROCHLORIDE
     Indication: DYSPEPSIA
     Dosage: UNK
  4. ZANTAC [Suspect]
     Active Substance: RANITIDINE HYDROCHLORIDE
     Indication: DYSPEPSIA
     Dosage: OCCASIONAL|25 MG|BOTH
     Route: 065
     Dates: start: 198501, end: 201801
  5. ZANTAC [Suspect]
     Active Substance: RANITIDINE HYDROCHLORIDE
     Indication: DYSPEPSIA
     Dosage: UNK
  6. ZANTAC [Suspect]
     Active Substance: RANITIDINE HYDROCHLORIDE
     Indication: EROSIVE OESOPHAGITIS
     Dosage: OCCASIONAL|75 MG|BOTH
     Route: 065
     Dates: start: 198501, end: 201801
  7. RANITIDINE CAPSULE [Suspect]
     Active Substance: RANITIDINE
     Indication: EROSIVE OESOPHAGITIS
     Dosage: 150 MG BOTH
     Route: 065
     Dates: start: 198503, end: 201801
  8. RANITIDINE. [Suspect]
     Active Substance: RANITIDINE
     Indication: DYSPEPSIA
     Dosage: UNK
  9. ZANTAC [Suspect]
     Active Substance: RANITIDINE HYDROCHLORIDE
     Indication: GASTROOESOPHAGEAL REFLUX DISEASE
     Dosage: OCCASIONAL|150 MG|BOTH
     Route: 065
     Dates: start: 198501, end: 201801
  10. ZANTAC [Suspect]
     Active Substance: RANITIDINE HYDROCHLORIDE
     Indication: HYPERCHLORHYDRIA
     Dosage: UNK
  11. RANITIDINE CAPSULE [Suspect]
     Active Substance: RANITIDINE
     Indication: DYSPEPSIA
     Dosage: 75 MG BOTH
     Route: 065
     Dates: start: 198503, end: 201801
  12. RANITIDINE. [Suspect]
     Active Substance: RANITIDINE
     Indication: EROSIVE OESOPHAGITIS
     Dosage: 150 MG BOTH
     Route: 065
     Dates: start: 198503, end: 201801
  13. RANITIDINE HCI [Suspect]
     Active Substance: RANITIDINE HYDROCHLORIDE
     Dosage: UNK
  14. ZANTAC [Suspect]
     Active Substance: RANITIDINE HYDROCHLORIDE
     Indication: DYSPEPSIA
     Dosage: OCCASIONAL|25 MG|BOTH
     Route: 065
     Dates: start: 198501, end: 201801
  15. ZANTAC [Suspect]
     Active Substance: RANITIDINE HYDROCHLORIDE
     Indication: DYSPEPSIA
     Dosage: 300 MG
     Route: 065
     Dates: start: 198501, end: 201801
  16. RANITIDINE CAPSULE [Suspect]
     Active Substance: RANITIDINE
     Indication: DYSPEPSIA
     Dosage: OCCASIONAL|300 MG|BOTH
     Route: 065
     Dates: start: 198501, end: 201801
  17. RANITIDINE. [Suspect]
     Active Substance: RANITIDINE
     Indication: DYSPEPSIA
     Dosage: 75 MG BOTH
     Route: 065
     Dates: start: 198503, end: 201801
  18. RANITIDINE. [Suspect]
     Active Substance: RANITIDINE
     Indication: HYPERCHLORHYDRIA
     Dosage: UNK
  19. RANITIDINE. [Suspect]
     Active Substance: RANITIDINE
     Indication: GASTROOESOPHAGEAL REFLUX DISEASE
     Dosage: 300 MG
     Route: 065
     Dates: start: 198503, end: 201801
  20. RANITIDINE. [Suspect]
     Active Substance: RANITIDINE
     Indication: DYSPEPSIA
     Dosage: UNK
  21. RANITIDINE. [Suspect]
     Active Substance: RANITIDINE
     Dosage: UNK
  22. RANITIDINE HCI [Suspect]
     Active Substance: RANITIDINE HYDROCHLORIDE
     Dosage: UNK
  23. ZANTAC [Suspect]
     Active Substance: RANITIDINE HYDROCHLORIDE
     Dosage: UNK
  24. ZANTAC [Suspect]
     Active Substance: RANITIDINE HYDROCHLORIDE
     Indication: GASTROOESOPHAGEAL REFLUX DISEASE
     Dosage: OCCASIONAL|150 MG|BOTH
     Route: 065
     Dates: start: 198501, end: 201801
  25. ZANTAC [Suspect]
     Active Substance: RANITIDINE HYDROCHLORIDE
     Indication: DYSPEPSIA
     Dosage: 300 MG
     Route: 065
     Dates: start: 198501, end: 201801
  26. ZANTAC [Suspect]
     Active Substance: RANITIDINE HYDROCHLORIDE
     Indication: HYPERCHLORHYDRIA
     Dosage: UNK
  27. RANITIDINE. [Suspect]
     Active Substance: RANITIDINE
     Indication: EROSIVE OESOPHAGITIS
     Dosage: 150 MG BOTH
     Route: 065
     Dates: start: 198503, end: 201801
  28. RANITIDINE. [Suspect]
     Active Substance: RANITIDINE
     Indication: DYSPEPSIA
     Dosage: UNK
  29. RANITIDINE. [Suspect]
     Active Substance: RANITIDINE
     Indication: HYPERCHLORHYDRIA
     Dosage: UNK
  30. RANITIDINE. [Suspect]
     Active Substance: RANITIDINE
     Indication: DYSPEPSIA
     Dosage: UNK
  31. RANITIDINE. [Suspect]
     Active Substance: RANITIDINE
     Indication: EROSIVE OESOPHAGITIS
     Dosage: 150 MG BOTH
     Route: 065
     Dates: start: 198503, end: 201801
  32. RANITIDINE HCI [Suspect]
     Active Substance: RANITIDINE HYDROCHLORIDE
     Dosage: UNK
  33. ZANTAC [Suspect]
     Active Substance: RANITIDINE HYDROCHLORIDE
     Dosage: UNK
  34. ZANTAC [Suspect]
     Active Substance: RANITIDINE HYDROCHLORIDE
     Dosage: UNK
  35. ZANTAC [Suspect]
     Active Substance: RANITIDINE HYDROCHLORIDE
     Indication: GASTROOESOPHAGEAL REFLUX DISEASE
     Dosage: OCCASIONAL|150 MG|BOTH
     Route: 065
     Dates: start: 198501, end: 201801
  36. RANITIDINE CAPSULE [Suspect]
     Active Substance: RANITIDINE
     Indication: GASTROOESOPHAGEAL REFLUX DISEASE
     Dosage: 300 MG BOTH
     Route: 065
     Dates: start: 198503, end: 201801
  37. RANITIDINE. [Suspect]
     Active Substance: RANITIDINE
     Indication: DYSPEPSIA
     Dosage: UNK
  38. RANITIDINE. [Suspect]
     Active Substance: RANITIDINE
     Indication: HYPERCHLORHYDRIA
     Dosage: UNK
  39. RANITIDINE HCI [Suspect]
     Active Substance: RANITIDINE HYDROCHLORIDE
     Dosage: UNK
  40. RANITIDINE HCI [Suspect]
     Active Substance: RANITIDINE HYDROCHLORIDE
     Dosage: UNK
  41. ZANTAC [Suspect]
     Active Substance: RANITIDINE HYDROCHLORIDE
  42. ZANTAC [Suspect]
     Active Substance: RANITIDINE HYDROCHLORIDE
     Dosage: UNK
  43. ZANTAC [Suspect]
     Active Substance: RANITIDINE HYDROCHLORIDE
     Indication: EROSIVE OESOPHAGITIS
     Dosage: OCCASIONAL|75 MG|BOTH
     Route: 065
     Dates: start: 198501, end: 201801
  44. ZANTAC [Suspect]
     Active Substance: RANITIDINE HYDROCHLORIDE
     Indication: EROSIVE OESOPHAGITIS
     Dosage: OCCASIONAL|75 MG|BOTH
     Route: 065
     Dates: start: 198501, end: 201801
  45. ZANTAC [Suspect]
     Active Substance: RANITIDINE HYDROCHLORIDE
     Indication: HYPERCHLORHYDRIA
     Dosage: UNK
  46. RANITIDINE CAPSULE [Suspect]
     Active Substance: RANITIDINE
     Indication: DYSPEPSIA
     Dosage: 300 MG
     Route: 065
     Dates: start: 198503, end: 201801
  47. RANITIDINE. [Suspect]
     Active Substance: RANITIDINE
     Indication: DYSPEPSIA
     Dosage: 75 MG BOTH
     Route: 065
     Dates: start: 198503, end: 201801
  48. RANITIDINE. [Suspect]
     Active Substance: RANITIDINE
     Indication: GASTROOESOPHAGEAL REFLUX DISEASE
     Dosage: 300 MG
     Route: 065
     Dates: start: 198503, end: 201801
  49. RANITIDINE. [Suspect]
     Active Substance: RANITIDINE
     Dosage: UNK
  50. RANITIDINE. [Suspect]
     Active Substance: RANITIDINE
     Dosage: UNK
  51. ZANTAC [Suspect]
     Active Substance: RANITIDINE HYDROCHLORIDE
     Dosage: UNK
  52. ZANTAC [Suspect]
     Active Substance: RANITIDINE HYDROCHLORIDE
     Indication: DYSPEPSIA
     Dosage: 300 MG
     Route: 065
     Dates: start: 198501, end: 201801
  53. ZANTAC [Suspect]
     Active Substance: RANITIDINE HYDROCHLORIDE
     Indication: DYSPEPSIA
     Dosage: UNK
  54. RANITIDINE CAPSULE [Suspect]
     Active Substance: RANITIDINE
     Indication: HYPERCHLORHYDRIA
     Dosage: 150 MG BOTH
     Route: 065
     Dates: start: 198503, end: 201801
  55. RANITIDINE. [Suspect]
     Active Substance: RANITIDINE
     Indication: GASTROOESOPHAGEAL REFLUX DISEASE
     Dosage: 300 MG
     Route: 065
     Dates: start: 198503, end: 201801
  56. RANITIDINE. [Suspect]
     Active Substance: RANITIDINE
     Indication: DYSPEPSIA
     Dosage: 75 MG BOTH
     Route: 065
     Dates: start: 198503, end: 201801
  57. RANITIDINE. [Suspect]
     Active Substance: RANITIDINE
  58. RANITIDINE. [Suspect]
     Active Substance: RANITIDINE
     Dosage: UNK
  59. ZANTAC [Suspect]
     Active Substance: RANITIDINE HYDROCHLORIDE
     Indication: DYSPEPSIA
     Dosage: OCCASIONAL|25 MG|BOTH
     Route: 065
     Dates: start: 198501, end: 201801
  60. RANITIDINE. [Suspect]
     Active Substance: RANITIDINE
     Indication: DYSPEPSIA
     Dosage: UNK

REACTIONS (2)
  - Prostatic disorder [Unknown]
  - Prostate cancer [Unknown]
